FAERS Safety Report 8805867 (Version 1)
Quarter: 2012Q4

REPORT INFORMATION
  Report Type: Spontaneous
  Country: US (occurrence: None)
  Receive Date: 20120918
  Receipt Date: 20120918
  Transmission Date: 20130627
  Serious: Yes (Life-Threatening, Hospitalization, Other)
  Sender: FDA-Public Use
  Company Number: 2012P1056315

PATIENT
  Age: 3 Year
  Sex: Female

DRUGS (4)
  1. DEXAMETHASONE [Suspect]
     Indication: SORE THROAT
  2. DEXAMETHASONE [Suspect]
     Indication: FEVER
  3. ACETAMINOPHEN [Concomitant]
  4. AMOXICILLIN [Concomitant]

REACTIONS (8)
  - Heart rate increased [None]
  - Thrombosis [None]
  - Mouth haemorrhage [None]
  - Tonsillar hypertrophy [None]
  - Acute lymphocytic leukaemia [None]
  - Duodenal ulcer perforation [None]
  - Peritonitis [None]
  - Osteonecrosis [None]
